FAERS Safety Report 6111884-3 (Version None)
Quarter: 2009Q1

REPORT INFORMATION
  Report Type: 
  Country: None (occurrence: None)
  Receive Date: 20090311
  Receipt Date: 20090226
  Transmission Date: 20090719
  Serious: Yes (Hospitalization)
  Sender: FDA-Public Use
  Company Number: JP-WATSON-2009-01390

PATIENT
  Age: 69 Year
  Sex: Male

DRUGS (6)
  1. RAPAFLO [Suspect]
     Indication: BLADDER OBSTRUCTION
     Dosage: 4 MG, DAILY
     Route: 048
     Dates: start: 20081105, end: 20081119
  2. LIVALO [Suspect]
     Indication: HYPERLIPIDAEMIA
     Dosage: 2 MG, DAILY
     Route: 048
     Dates: start: 20081022, end: 20081119
  3. PROSTAL                            /00093602/ [Suspect]
     Indication: BENIGN PROSTATIC HYPERPLASIA
     Dosage: 50 MG, DAILY
     Route: 048
     Dates: start: 20081105, end: 20081119
  4. BASEN [Concomitant]
     Indication: DIABETES MELLITUS
     Dosage: 0.6 MG, DAILY
     Route: 048
     Dates: start: 20040922
  5. DIOVAN                             /01319601/ [Concomitant]
     Indication: HYPERTENSION
     Dosage: 160 MG, DAILY
     Route: 048
     Dates: start: 20050511
  6. CONIEL [Concomitant]
     Indication: HYPERTENSION
     Dosage: 4 MG, DAILY
     Route: 048
     Dates: start: 20060726

REACTIONS (2)
  - HEPATIC STEATOSIS [None]
  - LIVER DISORDER [None]
